FAERS Safety Report 6178069-6 (Version None)
Quarter: 2009Q2

REPORT INFORMATION
  Report Type: 
  Country: None (occurrence: None)
  Receive Date: 20090504
  Receipt Date: 20090130
  Transmission Date: 20091009
  Serious: No
  Sender: FDA-Public Use
  Company Number: US-ALEXION-A200900087

PATIENT
  Sex: Male

DRUGS (6)
  1. SOLIRIS [Suspect]
     Indication: PAROXYSMAL NOCTURNAL HAEMOGLOBINURIA
     Dosage: 600 MG, QW
     Route: 042
     Dates: start: 20070613, end: 20070704
  2. SOLIRIS [Suspect]
     Dosage: 900 MG, Q2W
     Dates: start: 20070711
  3. PROTONIX                           /01263201/ [Concomitant]
     Dosage: 40 MG, QD
     Route: 048
  4. FOLIC ACID [Concomitant]
     Dosage: UNK
     Route: 048
  5. PREDNISONE [Concomitant]
     Dosage: UNK
     Route: 048
  6. EXJADE [Concomitant]
     Dosage: UNK
     Route: 048

REACTIONS (4)
  - DIARRHOEA [None]
  - HAEMOGLOBIN DECREASED [None]
  - HEADACHE [None]
  - UPPER RESPIRATORY TRACT INFECTION [None]
